FAERS Safety Report 22627473 (Version 1)
Quarter: 2023Q2

REPORT INFORMATION
  Report Type: Spontaneous
  Country: US (occurrence: US)
  Receive Date: 20230622
  Receipt Date: 20230622
  Transmission Date: 20230721
  Serious: Yes (Life-Threatening, Hospitalization, Other)
  Sender: FDA-Public Use
  Company Number: US-ABBVIE-5298214

PATIENT
  Age: 15 Year
  Sex: Female

DRUGS (4)
  1. DAPSONE [Suspect]
     Active Substance: DAPSONE
     Indication: Acne
     Route: 061
  2. DAPSONE [Suspect]
     Active Substance: DAPSONE
     Indication: Acne
     Route: 048
  3. METHYLENE BLUE [Interacting]
     Active Substance: METHYLENE BLUE
     Indication: Anxiety
     Route: 065
  4. ZOLOFT [Interacting]
     Active Substance: SERTRALINE HYDROCHLORIDE
     Indication: Anxiety
     Route: 065

REACTIONS (3)
  - Blood methaemoglobin present [Recovered/Resolved]
  - Drug interaction [Unknown]
  - Serotonin syndrome [Unknown]
